FAERS Safety Report 10988317 (Version 5)
Quarter: 2015Q2

REPORT INFORMATION
  Report Type: Spontaneous
  Country: US (occurrence: US)
  Receive Date: 20150404
  Receipt Date: 20150615
  Transmission Date: 20150821
  Serious: No
  Sender: FDA-Public Use
  Company Number: US-JNJFOC-20150105884

PATIENT
  Sex: Female
  Weight: 58.97 kg

DRUGS (7)
  1. REMICADE [Suspect]
     Active Substance: INFLIXIMAB
     Indication: RHEUMATOID ARTHRITIS
     Dosage: 3 MG/KG
     Route: 042
     Dates: start: 20140731, end: 2014
  2. PAXIL [Concomitant]
     Active Substance: PAROXETINE HYDROCHLORIDE
     Indication: ANTIDEPRESSANT THERAPY
     Dosage: 5 MG / 10 MG EVERY DAY (SOMETIMES TAKES FULL 10MG AS NEEDED)
     Route: 065
  3. REMICADE [Suspect]
     Active Substance: INFLIXIMAB
     Indication: RHEUMATOID ARTHRITIS
     Route: 042
     Dates: start: 2014, end: 20141231
  4. GABAPENTIN. [Concomitant]
     Active Substance: GABAPENTIN
     Indication: NEURALGIA
     Dosage: AS NEEDED
     Route: 065
  5. METHOTREXATE [Concomitant]
     Active Substance: METHOTREXATE
     Indication: RHEUMATOID ARTHRITIS
     Route: 065
  6. LORAZEPAM. [Concomitant]
     Active Substance: LORAZEPAM
     Route: 065
  7. FOLIC ACID. [Concomitant]
     Active Substance: FOLIC ACID
     Route: 065

REACTIONS (16)
  - Sinusitis [Unknown]
  - Dyspnoea [Recovered/Resolved]
  - Drug ineffective [Unknown]
  - Anxiety [Unknown]
  - Sleep disorder [Unknown]
  - Blood pressure increased [Unknown]
  - Rheumatoid arthritis [Unknown]
  - Cough [Unknown]
  - Fatigue [Unknown]
  - Depression [Unknown]
  - Constipation [Unknown]
  - Cardiac disorder [Recovered/Resolved]
  - Malaise [Unknown]
  - Heart rate irregular [Recovered/Resolved]
  - Oropharyngeal pain [Unknown]
  - Back disorder [Unknown]

NARRATIVE: CASE EVENT DATE: 2014
